FAERS Safety Report 4783482-5 (Version None)
Quarter: 2005Q3

REPORT INFORMATION
  Report Type: 
  Country: None (occurrence: None)
  Receive Date: 20050928
  Receipt Date: 20050928
  Transmission Date: 20060218
  Serious: Yes (Hospitalization)
  Sender: FDA-Public Use
  Company Number: None

PATIENT
  Age: 58 Year
  Sex: Male
  Weight: 114.8 kg

DRUGS (6)
  1. PLAVIX [Suspect]
     Dosage: 75MG QD BY MOUTH
     Route: 048
     Dates: start: 20050602, end: 20050608
  2. ASPIRIN [Concomitant]
  3. METOPROLOL TARTRATE [Concomitant]
  4. STUDY AMARYL [Concomitant]
  5. STUDY ZOCOR-SIMVASTATIN [Concomitant]
  6. IRBESARTAN [Concomitant]

REACTIONS (1)
  - RASH [None]
